FAERS Safety Report 6267815-9 (Version None)
Quarter: 2009Q3

REPORT INFORMATION
  Report Type: 
  Country: None (occurrence: None)
  Receive Date: 20090714
  Receipt Date: 20090616
  Transmission Date: 20100115
  Serious: No
  Sender: FDA-Public Use
  Company Number: US-BAYER-200911372BCC

PATIENT
  Age: 66 Year
  Sex: Female
  Weight: 70 kg

DRUGS (5)
  1. ALEVE [Suspect]
     Indication: ARTHRITIS
     Route: 048
     Dates: start: 20090101, end: 20090101
  2. ALEVE [Suspect]
     Dosage: TOTAL DAILY DOSE: 220 MG  UNIT DOSE: 220 MG
     Route: 048
     Dates: start: 20090101, end: 20090101
  3. MOVE FREE GLUCOSAMINE CHONDROITIN [Concomitant]
     Indication: DRUG USE FOR UNKNOWN INDICATION
     Route: 065
  4. GENERIC ESTROGEN REPLACEMENT [Concomitant]
     Indication: DRUG USE FOR UNKNOWN INDICATION
     Route: 065
  5. IBUPROFEN [Concomitant]
     Indication: BACK PAIN
     Route: 065

REACTIONS (2)
  - DYSPEPSIA [None]
  - VISION BLURRED [None]
